FAERS Safety Report 6820332-7 (Version None)
Quarter: 2010Q3

REPORT INFORMATION
  Report Type: 
  Country: None (occurrence: None)
  Receive Date: 20100707
  Receipt Date: 20100630
  Transmission Date: 20110219
  Serious: Yes (Hospitalization)
  Sender: FDA-Public Use
  Company Number: PHHO2010US08413

PATIENT
  Sex: Female
  Weight: 58.4 kg

DRUGS (16)
  1. AFINITOR [Suspect]
     Indication: UTERINE CANCER
     Dosage: UNK
     Route: 048
     Dates: start: 20100427, end: 20100531
  2. GEMCITABINE COMPARATOR COMP-GEM+ [Suspect]
     Indication: UTERINE CANCER
     Dosage: UNK
     Dates: start: 20100427, end: 20100531
  3. CISPLATIN COMP-CIS+ [Suspect]
     Indication: UTERINE CANCER
     Dosage: UNK
     Dates: start: 20100427, end: 20100531
  4. OXYCODONE HCL [Concomitant]
  5. ATIVAN [Concomitant]
  6. DECADRON [Concomitant]
  7. BENEFIBER [Concomitant]
  8. PNEUMOVAX 23 [Concomitant]
  9. FLUVIRIN [Concomitant]
  10. TYLENOL [Concomitant]
  11. HYDROMORPHONE [Concomitant]
  12. COMPAZINE [Concomitant]
  13. HEPARIN [Concomitant]
  14. TORADOL [Concomitant]
  15. OMNIPAQUE 140 [Concomitant]
  16. SODIUM CHLORIDE [Concomitant]

REACTIONS (30)
  - ABDOMINAL DISCOMFORT [None]
  - ABDOMINAL DISTENSION [None]
  - ABDOMINAL PAIN [None]
  - ANAEMIA [None]
  - COAGULOPATHY [None]
  - COLECTOMY [None]
  - CONFUSION POSTOPERATIVE [None]
  - DEHYDRATION [None]
  - ERUCTATION [None]
  - FISTULA [None]
  - FOOD INTOLERANCE [None]
  - GASTROINTESTINAL TUBE INSERTION [None]
  - INFREQUENT BOWEL MOVEMENTS [None]
  - KLEBSIELLA INFECTION [None]
  - LEUKOCYTOSIS [None]
  - LEUKOPENIA [None]
  - MALIGNANT ASCITES [None]
  - MALIGNANT NEOPLASM PROGRESSION [None]
  - NAUSEA [None]
  - NEPHROSTOMY TUBE PLACEMENT [None]
  - NEUTROPENIA [None]
  - PANCYTOPENIA [None]
  - PARACENTESIS [None]
  - PYREXIA [None]
  - RENAL FAILURE ACUTE [None]
  - SMALL INTESTINAL OBSTRUCTION [None]
  - STAPHYLOCOCCAL INFECTION [None]
  - SURGERY [None]
  - THROMBOCYTOPENIA [None]
  - URETERIC OPERATION [None]
